FAERS Safety Report 21909469 (Version 1)
Quarter: 2023Q1

REPORT INFORMATION
  Report Type: Spontaneous
  Country: US (occurrence: US)
  Receive Date: 20230125
  Receipt Date: 20230125
  Transmission Date: 20230418
  Serious: Yes (Hospitalization)
  Sender: FDA-Public Use
  Company Number: US-PFIZER INC-PV202300014766

PATIENT
  Age: 75 Year
  Sex: Female

DRUGS (2)
  1. IBRANCE [Suspect]
     Active Substance: PALBOCICLIB
     Indication: Breast cancer metastatic
     Dosage: 125 MG
     Dates: end: 201902
  2. IBRANCE [Suspect]
     Active Substance: PALBOCICLIB
     Dosage: (1-21, MONTHLY)
     Dates: start: 20220803

REACTIONS (4)
  - Neutropenia [Unknown]
  - Urosepsis [Unknown]
  - Urinary incontinence [Unknown]
  - Neoplasm progression [Unknown]
